FAERS Safety Report 10096595 (Version 1)
Quarter: 2014Q2

REPORT INFORMATION
  Report Type: Report from Study
  Country: US (occurrence: US)
  Receive Date: 20140422
  Receipt Date: 20140422
  Transmission Date: 20141212
  Serious: Yes (Hospitalization)
  Sender: FDA-Public Use
  Company Number: US-PURDUE-USA-2014-0113177

PATIENT
  Age: 50 Year
  Sex: Male

DRUGS (2)
  1. OXY CR TAB [Suspect]
     Indication: INTERVERTEBRAL DISC DEGENERATION
     Dosage: UNK
     Route: 048
     Dates: start: 2006
  2. OXY CR TAB [Suspect]
     Dosage: 240 MG, Q12H
     Route: 048
     Dates: start: 20140404

REACTIONS (3)
  - Cardiac operation [Unknown]
  - Cardiac disorder [Unknown]
  - Mental impairment [Unknown]
